FAERS Safety Report 6141111-2 (Version None)
Quarter: 2009Q2

REPORT INFORMATION
  Report Type: 
  Country: None (occurrence: None)
  Receive Date: 20090401
  Receipt Date: 20090401
  Transmission Date: 20091009
  Serious: Yes (Hospitalization)
  Sender: FDA-Public Use
  Company Number: None

PATIENT
  Age: 66 Year
  Sex: Male
  Weight: 77.1115 kg

DRUGS (13)
  1. AZACITIDINE [Suspect]
     Indication: ACUTE MYELOID LEUKAEMIA
     Dosage: 100 MG/M2 IV Q 4 WEEKS
     Dates: start: 20081006, end: 20090223
  2. ACYCLOVIR [Concomitant]
  3. ALBUTEROL [Concomitant]
  4. CIPROFLOXACIN [Concomitant]
  5. DOCUSATE/SENNOSIDES [Concomitant]
  6. GLIPIZIDE [Concomitant]
  7. IPRATROPIUM BROMIDE [Concomitant]
  8. ONDANSETRON [Concomitant]
  9. OXYCODONE HCL AND ACETAMINOPHEN [Concomitant]
  10. TEMAZEPAM [Concomitant]
  11. VARDENAFIL HCL [Concomitant]
  12. ACYCLOVIR [Concomitant]
  13. CEPHALEXIN [Concomitant]

REACTIONS (6)
  - ABSCESS LIMB [None]
  - CELLULITIS [None]
  - HAEMATURIA [None]
  - JOINT ABSCESS [None]
  - PITTING OEDEMA [None]
  - THROMBOCYTOPENIA [None]
